FAERS Safety Report 9296704 (Version 1)
Quarter: 2013Q2

REPORT INFORMATION
  Report Type: Spontaneous
  Country: IN (occurrence: IN)
  Receive Date: 20130517
  Receipt Date: 20130517
  Transmission Date: 20140414
  Serious: Yes (Hospitalization)
  Sender: FDA-Public Use
  Company Number: IN-PFIZER INC-2013148045

PATIENT
  Age: 2 Year
  Sex: Male

DRUGS (2)
  1. AZITHROMYCIN [Suspect]
     Indication: PYREXIA
     Dosage: 200 MG, 1X/DAY (20 MG/KG)
     Route: 048
  2. MIDAZOLAM [Interacting]
     Indication: SEDATION
     Dosage: ONE MILLIGRAM PARENTERAL PREPARATION (0.1 MG/KG)
     Route: 048

REACTIONS (2)
  - Drug interaction [Recovered/Resolved]
  - Sedation [Recovered/Resolved]
